FAERS Safety Report 9276189 (Version 1)
Quarter: 2013Q2

REPORT INFORMATION
  Report Type: Spontaneous
  Country: US (occurrence: US)
  Receive Date: 20130507
  Receipt Date: 20130507
  Transmission Date: 20140414
  Serious: Yes (Hospitalization)
  Sender: FDA-Public Use
  Company Number: US-BAYER-2013-056597

PATIENT
  Age: 36 Year
  Sex: Female
  Weight: 142.86 kg

DRUGS (7)
  1. YAZ [Suspect]
     Dosage: UNK
  2. TEMAZEPAM [Concomitant]
     Dosage: 30 MG, UNK
  3. KEFLEX [Concomitant]
     Dosage: 500 MG, UNK
  4. LORTAB [Concomitant]
  5. LEVOTHYROXINE [Concomitant]
  6. ALPRAZOLAM [Concomitant]
     Indication: ANXIETY
  7. LEXAPRO [Concomitant]
     Indication: ANXIETY

REACTIONS (1)
  - Deep vein thrombosis [None]
